FAERS Safety Report 6662219-9 (Version None)
Quarter: 2010Q1

REPORT INFORMATION
  Report Type: 
  Country: None (occurrence: None)
  Receive Date: 20100331
  Receipt Date: 20100322
  Transmission Date: 20100710
  Serious: Yes (Other)
  Sender: FDA-Public Use
  Company Number: GXKR2010ES02588

PATIENT
  Age: 9 Year
  Sex: Male

DRUGS (5)
  1. PREDNISONE TAB [Suspect]
     Indication: PRECURSOR T-LYMPHOBLASTIC LYMPHOMA/LEUKAEMIA
     Route: 065
  2. ASPARAGINASE [Suspect]
     Indication: PRECURSOR T-LYMPHOBLASTIC LYMPHOMA/LEUKAEMIA
     Route: 065
  3. VINCRISTINE [Concomitant]
     Indication: PRECURSOR T-LYMPHOBLASTIC LYMPHOMA/LEUKAEMIA
     Route: 065
  4. DAUNORUBICIN HCL [Concomitant]
     Indication: PRECURSOR T-LYMPHOBLASTIC LYMPHOMA/LEUKAEMIA
     Route: 065
  5. METHOTREXATE [Concomitant]
     Indication: PRECURSOR T-LYMPHOBLASTIC LYMPHOMA/LEUKAEMIA
     Route: 037

REACTIONS (4)
  - ABDOMINAL PAIN [None]
  - HEPATIC STEATOSIS [None]
  - HYPERLIPIDAEMIA [None]
  - MEDICAL DIET [None]
